FAERS Safety Report 8361881 (Version 2)
Quarter: 2013Q4

REPORT INFORMATION
  Report Type: Report from Study
  Country: MX (occurrence: MX)
  Receive Date: 20120130
  Receipt Date: 20131219
  Transmission Date: 20140711
  Serious: Yes (Death, Hospitalization)
  Sender: FDA-Public Use
  Company Number: PHHY2011MX109455

PATIENT
  Age: 85 Year
  Sex: Female

DRUGS (8)
  1. GALVUS [Suspect]
     Indication: DIABETES MELLITUS
     Dosage: 2 DF (50MG), DAILY
     Route: 048
     Dates: start: 201010
  2. ZOMETA [Suspect]
     Indication: OSTEOPOROSIS
     Dosage: 4 MG VIAL
     Route: 042
     Dates: start: 201106
  3. CO-DIOVAN [Suspect]
     Indication: HYPERTENSION
     Dosage: UNK UKN, UNK
     Dates: start: 201111
  4. INSULIN [Concomitant]
     Indication: DIABETES MELLITUS
     Dosage: 20 U, IN THE MORNING
  5. IMURAN [Concomitant]
     Indication: PLATELET DISORDER
     Dosage: 1 DF, DAILY
  6. FELODIPINE [Concomitant]
     Indication: HYPERTENSION
     Dosage: 2 DF,  DAILY
     Dates: start: 201111
  7. VYTORIN [Concomitant]
     Indication: BLOOD TRIGLYCERIDES ABNORMAL
     Dosage: UNK UKN, UNK
  8. ASPIRIN N [Concomitant]
     Dosage: UNK UKN, UNK

REACTIONS (9)
  - Pneumonia [Fatal]
  - Malnutrition [Recovered/Resolved]
  - Dehydration [Recovered/Resolved]
  - Blood cholesterol decreased [Unknown]
  - Bone pain [Not Recovered/Not Resolved]
  - Blood creatinine increased [Unknown]
  - Blood urea increased [Unknown]
  - Blood glucose increased [Unknown]
  - Local swelling [Not Recovered/Not Resolved]
